FAERS Safety Report 14844158 (Version 1)
Quarter: 2018Q2

REPORT INFORMATION
  Report Type: Spontaneous
  Country: MY (occurrence: MY)
  Receive Date: 20180503
  Receipt Date: 20180503
  Transmission Date: 20180711
  Serious: Yes (Hospitalization, Other)
  Sender: FDA-Public Use
  Company Number: MY-B.I. PHARMACEUTICALS,INC./RIDGEFIELD-2018-BI-023366

PATIENT
  Age: 41 Year
  Sex: Female

DRUGS (4)
  1. AFATINIB [Suspect]
     Active Substance: AFATINIB
     Route: 065
  2. TAMOXIFEN [Concomitant]
     Active Substance: TAMOXIFEN
     Indication: BREAST CANCER FEMALE
     Route: 065
  3. AFATINIB [Suspect]
     Active Substance: AFATINIB
     Indication: LUNG ADENOCARCINOMA
     Route: 065
     Dates: start: 20170110
  4. CAPECITABINE. [Concomitant]
     Active Substance: CAPECITABINE
     Indication: BREAST DISORDER
     Route: 065

REACTIONS (4)
  - Seizure [Unknown]
  - Seizure [Unknown]
  - Central nervous system lesion [Unknown]
  - Lung disorder [Unknown]

NARRATIVE: CASE EVENT DATE: 201707
